FAERS Safety Report 7538867-0 (Version None)
Quarter: 2011Q2

REPORT INFORMATION
  Report Type: 
  Country: None (occurrence: None)
  Receive Date: 20110524
  Receipt Date: 20110410
  Transmission Date: 20111010
  Serious: No
  Sender: FDA-Public Use
  Company Number: 031195

PATIENT

DRUGS (1)
  1. CIMZIA [Suspect]
     Indication: RHEUMATOID ARTHRITIS
     Dosage: (EVERY OTHER WEEK SUBCUTANEOUS) ; (TWO 200 ML ONCE A MONTH SUBCUTANEOUS)
     Route: 058

REACTIONS (2)
  - ASTHENIA [None]
  - MUSCULOSKELETAL DISCOMFORT [None]
